FAERS Safety Report 17265366 (Version 16)
Quarter: 2025Q1

REPORT INFORMATION
  Report Type: Report from Study
  Country: US (occurrence: US)
  Receive Date: 20200114
  Receipt Date: 20250228
  Transmission Date: 20250409
  Serious: Yes (Death, Hospitalization, Other)
  Sender: TAKEDA
  Company Number: US-SHIRE-US202000780

PATIENT
  Age: 93 Year
  Sex: Male
  Weight: 86 kg

DRUGS (28)
  1. HUMAN IMMUNOGLOBULIN G [Suspect]
     Active Substance: HUMAN IMMUNOGLOBULIN G
     Indication: Immunodeficiency common variable
     Dosage: 5 GRAM, 1/WEEK
     Dates: start: 20120209
  2. HUMAN IMMUNOGLOBULIN G [Suspect]
     Active Substance: HUMAN IMMUNOGLOBULIN G
     Indication: Immunodeficiency
     Dosage: 5 GRAM, Q2WEEKS
  3. Topril [Concomitant]
  4. ATORVASTATIN CALCIUM [Concomitant]
     Active Substance: ATORVASTATIN CALCIUM
  5. FUROSEMIDE [Concomitant]
     Active Substance: FUROSEMIDE
  6. LIPITOR [Concomitant]
     Active Substance: ATORVASTATIN CALCIUM
  7. FLOMAX [Concomitant]
     Active Substance: TAMSULOSIN HYDROCHLORIDE
  8. TAMSULOSIN HYDROCHLORIDE [Concomitant]
     Active Substance: TAMSULOSIN HYDROCHLORIDE
  9. FINASTERIDE [Concomitant]
     Active Substance: FINASTERIDE
  10. LIDOCAINE [Concomitant]
     Active Substance: LIDOCAINE
  11. METOPROLOL SUCCINATE [Concomitant]
     Active Substance: METOPROLOL SUCCINATE
  12. HYZAAR [Concomitant]
     Active Substance: HYDROCHLOROTHIAZIDE\LOSARTAN POTASSIUM
  13. METOPROLOL TARTRATE [Concomitant]
     Active Substance: METOPROLOL TARTRATE
  14. OCUVITE [Concomitant]
     Active Substance: VITAMINS
  15. ZITHROMAX [Concomitant]
     Active Substance: AZITHROMYCIN DIHYDRATE
  16. LEVAQUIN [Concomitant]
     Active Substance: LEVOFLOXACIN
  17. DIPHENHYDRAMINE [Concomitant]
     Active Substance: DIPHENHYDRAMINE
  18. ACETAMINOPHEN [Concomitant]
     Active Substance: ACETAMINOPHEN
  19. EPINEPHRINE [Concomitant]
     Active Substance: EPINEPHRINE
  20. METOPROLOL [Concomitant]
     Active Substance: METOPROLOL
  21. CAPTOPRIL [Concomitant]
     Active Substance: CAPTOPRIL
  22. OCUVITE [Concomitant]
     Active Substance: VITAMINS
  23. LOSARTAN [Concomitant]
     Active Substance: LOSARTAN
  24. TAMSULOSIN [Concomitant]
     Active Substance: TAMSULOSIN
  25. LOSARTAN POTASSIUM [Concomitant]
     Active Substance: LOSARTAN POTASSIUM
  26. ASPIRIN [Concomitant]
     Active Substance: ASPIRIN
  27. MINERALS\VITAMINS [Concomitant]
     Active Substance: MINERALS\VITAMINS
  28. DIPHENHYDRAMINE HYDROCHLORIDE [Concomitant]
     Active Substance: DIPHENHYDRAMINE HYDROCHLORIDE

REACTIONS (9)
  - Death [Fatal]
  - Post procedural sepsis [Unknown]
  - Infection [Unknown]
  - COVID-19 [Unknown]
  - Fall [Unknown]
  - Product dose omission issue [Unknown]
  - Product prescribing issue [Unknown]
  - Urinary tract infection [Unknown]
  - Malaise [Unknown]

NARRATIVE: CASE EVENT DATE: 20250202
